FAERS Safety Report 8878388 (Version 1)
Quarter: 2012Q4

REPORT INFORMATION
  Report Type: 
  Country: US (occurrence: US)
  Receive Date: 20121025
  Receipt Date: 20121025
  Transmission Date: 20130627
  Serious: No
  Sender: FDA-Public Use
  Company Number: US-AMGEN-USASP2012022344

PATIENT
  Age: 71 Year
  Sex: Male

DRUGS (17)
  1. ENBREL [Suspect]
     Indication: PRODUCT USED FOR UNKNOWN INDICATION
     Dosage: 50 mg, qwk
     Dates: start: 200801
  2. VITAMIN B12                        /00056201/ [Concomitant]
     Dosage: UNK
  3. VITAMIN D /00107901/ [Concomitant]
     Dosage: UNK
  4. CENTRUM SILVER                     /01292501/ [Concomitant]
     Dosage: UNK
  5. CALCIUM [Concomitant]
     Dosage: UNK
  6. ZOCOR [Concomitant]
     Dosage: UNK
  7. ZETIA [Concomitant]
     Dosage: UNK
  8. LORTAB                             /00607101/ [Concomitant]
     Dosage: UNK
  9. AMITRIPTYLINE [Concomitant]
     Dosage: UNK
  10. FOLIC ACID [Concomitant]
     Dosage: UNK
  11. METHOTREXATE [Concomitant]
     Dosage: UNK
  12. GLUCOPHAGE LA [Concomitant]
     Dosage: UNK
  13. GLUCOTROL [Concomitant]
     Dosage: UNK
  14. PRILOSEC                           /00661201/ [Concomitant]
     Dosage: UNK
  15. PILOCARPINE [Concomitant]
     Dosage: UNK
  16. LANTUS [Concomitant]
     Dosage: UNK
  17. WARFARIN [Concomitant]
     Dosage: UNK

REACTIONS (1)
  - Cystitis [Not Recovered/Not Resolved]
